FAERS Safety Report 25172979 (Version 2)
Quarter: 2025Q2

REPORT INFORMATION
  Report Type: Report from Study
  Country: US (occurrence: US)
  Receive Date: 20250408
  Receipt Date: 20250414
  Transmission Date: 20250716
  Serious: Yes (Other)
  Sender: TAKEDA
  Company Number: US-TAKEDA-2025TUS033270

PATIENT
  Sex: Male

DRUGS (5)
  1. FRUQUINTINIB [Suspect]
     Active Substance: FRUQUINTINIB
     Indication: Rectal cancer
  2. FRUQUINTINIB [Suspect]
     Active Substance: FRUQUINTINIB
  3. HYDROCODONE BITARTRATE [Concomitant]
     Active Substance: HYDROCODONE BITARTRATE
  4. METHOCARBAMOL [Concomitant]
     Active Substance: METHOCARBAMOL
  5. OXYCODONE [Concomitant]
     Active Substance: OXYCODONE

REACTIONS (4)
  - Rectal haemorrhage [Not Recovered/Not Resolved]
  - Rectal discharge [Not Recovered/Not Resolved]
  - Proctalgia [Recovering/Resolving]
  - Dysphonia [Not Recovered/Not Resolved]
